FAERS Safety Report 6039704-6 (Version None)
Quarter: 2009Q1

REPORT INFORMATION
  Report Type: 
  Country: None (occurrence: None)
  Receive Date: 20090116
  Receipt Date: 20090107
  Transmission Date: 20090719
  Serious: Yes (Hospitalization, Other)
  Sender: FDA-Public Use
  Company Number: PHHY2007MX00749

PATIENT
  Age: 74 Year
  Sex: Female

DRUGS (10)
  1. DIOVAN HCT [Suspect]
     Indication: HYPERTENSION
     Dosage: 1 TABLET PER DAY
     Route: 048
     Dates: start: 20071101, end: 20071101
  2. ALIN [Concomitant]
  3. TRIMEBUTINE [Concomitant]
  4. RABEPRAZOLE SODIUM [Concomitant]
  5. AROPAX [Concomitant]
  6. EUTIROX [Concomitant]
  7. PLAVIX [Concomitant]
  8. SENNOSIDE [Concomitant]
  9. NITROGLYCERIN [Concomitant]
  10. MULTI-VITAMIN [Concomitant]

REACTIONS (6)
  - BLOOD CHLORIDE DECREASED [None]
  - BLOOD POTASSIUM DECREASED [None]
  - BLOOD SODIUM DECREASED [None]
  - COLONOSCOPY [None]
  - DEHYDRATION [None]
  - PROTEIN TOTAL DECREASED [None]
